FAERS Safety Report 13687820 (Version 1)
Quarter: 2017Q2

REPORT INFORMATION
  Report Type: Spontaneous
  Country: US (occurrence: US)
  Receive Date: 20170623
  Receipt Date: 20170623
  Transmission Date: 20170830
  Serious: No
  Sender: FDA-Public Use
  Company Number: None

PATIENT
  Age: 40 Year
  Sex: Female
  Weight: 69.3 kg

DRUGS (1)
  1. LIDOCAINE PATCH 5% (30 PATCHES) [Suspect]
     Active Substance: LIDOCAINE
     Indication: BACK PAIN
     Dosage: QUANTITY:30 PATCH(ES);?
     Route: 062
     Dates: start: 20170603, end: 20170610

REACTIONS (3)
  - Product adhesion issue [None]
  - Drug ineffective [None]
  - Product quality issue [None]

NARRATIVE: CASE EVENT DATE: 20170603
